FAERS Safety Report 7020237-5 (Version None)
Quarter: 2010Q3

REPORT INFORMATION
  Report Type: 
  Country: None (occurrence: None)
  Receive Date: 20100929
  Receipt Date: 20100924
  Transmission Date: 20110219
  Serious: Yes (Death)
  Sender: FDA-Public Use
  Company Number: PHHY2010AR63913

PATIENT
  Sex: Male

DRUGS (1)
  1. EXELON [Suspect]
     Indication: MOTOR NEURONE DISEASE
     Dosage: 4.6MG/24 HOURS
     Route: 062
     Dates: start: 20100801

REACTIONS (1)
  - DEATH [None]
